FAERS Safety Report 7904198-X (Version None)
Quarter: 2011Q4

REPORT INFORMATION
  Report Type: 
  Country: None (occurrence: None)
  Receive Date: 20111109
  Receipt Date: 20111104
  Transmission Date: 20120403
  Serious: Yes (Hospitalization, Other)
  Sender: FDA-Public Use
  Company Number: US-AMGEN-USASP2011055138

PATIENT
  Age: 71 Year
  Sex: Female

DRUGS (2)
  1. CORTICOSTEROIDS [Concomitant]
     Indication: IDIOPATHIC THROMBOCYTOPENIC PURPURA
  2. NPLATE [Suspect]
     Indication: IDIOPATHIC THROMBOCYTOPENIC PURPURA
     Dosage: 10 MUG/KG, UNK
     Dates: start: 20110105, end: 20110428

REACTIONS (7)
  - IDIOPATHIC THROMBOCYTOPENIC PURPURA [None]
  - GASTROINTESTINAL HAEMORRHAGE [None]
  - THERAPEUTIC RESPONSE DECREASED [None]
  - DISEASE PROGRESSION [None]
  - THROMBOCYTOPENIA [None]
  - BONE MARROW RETICULIN FIBROSIS [None]
  - THROMBOSIS [None]
